FAERS Safety Report 7757627-9 (Version None)
Quarter: 2011Q3

REPORT INFORMATION
  Report Type: 
  Country: None (occurrence: None)
  Receive Date: 20110916
  Receipt Date: 20110906
  Transmission Date: 20111222
  Serious: Yes (Other)
  Sender: FDA-Public Use
  Company Number: US-BAYER-201037137NA

PATIENT
  Age: 32 Year
  Sex: Female
  Weight: 74.83 kg

DRUGS (9)
  1. CIPROFLOXACIN [Concomitant]
     Dosage: 500 MG, UNK
     Route: 048
  2. TRAZODONE HCL [Concomitant]
     Route: 048
  3. CECLOR [Concomitant]
     Dosage: 250 MG, UNK
     Route: 048
     Dates: start: 20081101, end: 20081201
  4. BACTRIM DS [Concomitant]
     Route: 048
  5. UNCODEABLE ^UNCLASSIFIABLE^ [Concomitant]
     Dosage: 750 MG, UNK
     Route: 048
  6. CYMBALTA [Concomitant]
     Route: 048
  7. YAZ [Suspect]
     Dosage: UNK UNK, UNK
     Route: 048
     Dates: start: 20071101, end: 20090301
  8. RONDEC DM [CARBINOXAM MAL,DEXTROMET HBR,PSEUDOEPH HCL] [Concomitant]
     Dosage: UNK
     Route: 048
     Dates: start: 20081101, end: 20081201
  9. FIORICET [Concomitant]
     Route: 048

REACTIONS (5)
  - TRANSIENT ISCHAEMIC ATTACK [None]
  - CEREBROVASCULAR ACCIDENT [None]
  - ABORTION SPONTANEOUS [None]
  - HEADACHE [None]
  - HYPOAESTHESIA [None]
